FAERS Safety Report 20124742 (Version 1)
Quarter: 2021Q4

REPORT INFORMATION
  Report Type: Report from Study
  Country: BR (occurrence: BR)
  Receive Date: 20211129
  Receipt Date: 20211129
  Transmission Date: 20220303
  Serious: Yes (Other)
  Sender: FDA-Public Use
  Company Number: BR-NOVARTISPH-NVSC2021BR265802

PATIENT
  Age: 36 Year
  Sex: Female

DRUGS (5)
  1. LETROZOLE [Suspect]
     Active Substance: LETROZOLE
     Indication: Invasive breast carcinoma
     Dosage: 2.5 MG, QD
     Route: 065
  2. RIBOCICLIB [Suspect]
     Active Substance: RIBOCICLIB
     Indication: Invasive breast carcinoma
     Dosage: 600 MG, QD (FOR 21 DAYS AND PAUSE FOR 7 DAYS)
     Route: 065
  3. RIBOCICLIB [Suspect]
     Active Substance: RIBOCICLIB
     Dosage: 200 MG, QD
     Route: 065
     Dates: start: 20210429
  4. GOSERELIN [Concomitant]
     Active Substance: GOSERELIN
     Indication: Product used for unknown indication
     Dosage: 3.6 MG, EVERY 28 DAYS
     Route: 065
  5. ZOLADEX [Concomitant]
     Active Substance: GOSERELIN ACETATE
     Indication: Product used for unknown indication
     Dosage: 3.6 MG, EVERY 28 DAYS
     Route: 065

REACTIONS (20)
  - Liver injury [Unknown]
  - Hepatotoxicity [Unknown]
  - Hepatic enzyme abnormal [Unknown]
  - PIK3CA-activated mutation [Unknown]
  - Malaise [Unknown]
  - Nausea [Unknown]
  - Vomiting [Unknown]
  - Abdominal pain upper [Unknown]
  - Jaundice [Unknown]
  - Aspartate aminotransferase increased [Unknown]
  - Alanine aminotransferase increased [Unknown]
  - Blood bilirubin abnormal [Unknown]
  - International normalised ratio abnormal [Unknown]
  - Hepatitis B surface antibody positive [Unknown]
  - Gastritis [Unknown]
  - Liver function test increased [Unknown]
  - Gamma-glutamyltransferase increased [Unknown]
  - Hypermetabolism [Unknown]
  - Lymphadenopathy [Unknown]
  - Hepatic lesion [Unknown]

NARRATIVE: CASE EVENT DATE: 20210101
